FAERS Safety Report 7446587-6 (Version None)
Quarter: 2011Q2

REPORT INFORMATION
  Report Type: 
  Country: None (occurrence: None)
  Receive Date: 20110429
  Receipt Date: 20110418
  Transmission Date: 20111010
  Serious: Yes (Hospitalization)
  Sender: FDA-Public Use
  Company Number: US-JNJFOC-20110407873

PATIENT
  Age: 62 Year
  Sex: Female
  Weight: 73.6 kg

DRUGS (10)
  1. ZONISAMIDE [Suspect]
     Indication: PAIN
  2. PERCOCET [Suspect]
     Indication: PAIN
  3. ALPRAZOLAM [Suspect]
     Indication: PAIN
  4. EXTRA STRENGTH TYLENOL [Suspect]
     Route: 065
  5. EXTRA STRENGTH TYLENOL [Suspect]
     Indication: PAIN
     Route: 065
  6. DIPHENHYDRAMINE [Suspect]
     Indication: PAIN
  7. FIORICET [Suspect]
     Indication: PAIN
  8. METAXALONE [Suspect]
     Indication: PAIN
  9. FENTANYL [Suspect]
     Indication: PAIN
  10. FLUCONAZOLE [Suspect]
     Indication: PAIN

REACTIONS (7)
  - TRANSAMINASES INCREASED [None]
  - MULTIPLE DRUG OVERDOSE [None]
  - PROTHROMBIN LEVEL INCREASED [None]
  - RHABDOMYOLYSIS [None]
  - RENAL TUBULAR NECROSIS [None]
  - RESPIRATORY DEPRESSION [None]
  - DRUG ABUSE [None]
